FAERS Safety Report 9275594 (Version 1)
Quarter: 2013Q2

REPORT INFORMATION
  Report Type: Spontaneous
  Country: US (occurrence: None)
  Receive Date: 20130502
  Receipt Date: 20130502
  Transmission Date: 20140414
  Serious: Yes (Other)
  Sender: FDA-Public Use
  Company Number: None

PATIENT
  Age: 12 Year
  Sex: Female
  Weight: 42.18 kg

DRUGS (2)
  1. METHYLPHENIDATE ER [Suspect]
     Indication: ATTENTION DEFICIT/HYPERACTIVITY DISORDER
     Dosage: 1  QAM
     Route: 002
     Dates: start: 20130410, end: 20130501
  2. METHYLPHENIDATE ER [Suspect]
     Dosage: 1  QAM
     Route: 002
     Dates: start: 20130410, end: 20130501

REACTIONS (5)
  - Irritability [None]
  - Depression [None]
  - Drug ineffective [None]
  - Product substitution issue [None]
  - Therapeutic response unexpected with drug substitution [None]
